FAERS Safety Report 9014031 (Version 2)
Quarter: 2013Q1

REPORT INFORMATION
  Report Type: Spontaneous
  Country: US (occurrence: US)
  Receive Date: 20130115
  Receipt Date: 20130315
  Transmission Date: 20140127
  Serious: No
  Sender: FDA-Public Use
  Company Number: US-ROCHE-1179628

PATIENT
  Age: 1 Year
  Sex: Female

DRUGS (1)
  1. TAMIFLU [Suspect]
     Indication: INFLUENZA
     Dosage: TAMIFLU DRY SYRUP 30 MG/5 ML IN GLASS BOTTLE 65 ML US
     Route: 048

REACTIONS (3)
  - Vomiting [Unknown]
  - Dysgeusia [Unknown]
  - Product quality issue [Unknown]
